FAERS Safety Report 21460199 (Version 1)
Quarter: 2022Q4

REPORT INFORMATION
  Report Type: Spontaneous
  Country: US (occurrence: US)
  Receive Date: 20221014
  Receipt Date: 20221014
  Transmission Date: 20230112
  Serious: No
  Sender: FDA-Public Use
  Company Number: US-INDIVIOR US-INDV-131088-2021

PATIENT
  Sex: Male

DRUGS (1)
  1. SUBLOCADE [Suspect]
     Active Substance: BUPRENORPHINE
     Indication: Product used for unknown indication
     Dosage: 300 MILLIGRAM, QMO (RECEIVED TWO INJECTIONS)
     Route: 058
     Dates: start: 20210908

REACTIONS (7)
  - Injection site scar [Unknown]
  - Injection site pain [Not Recovered/Not Resolved]
  - Injection site vesicles [Unknown]
  - Injection site erosion [Unknown]
  - Injection site erythema [Unknown]
  - Drug withdrawal syndrome [Unknown]
  - Injection site pain [Recovered/Resolved]

NARRATIVE: CASE EVENT DATE: 20210901
